FAERS Safety Report 15940529 (Version 1)
Quarter: 2019Q1

REPORT INFORMATION
  Report Type: Spontaneous
  Country: US (occurrence: US)
  Receive Date: 20190208
  Receipt Date: 20190208
  Transmission Date: 20190417
  Serious: No
  Sender: FDA-Public Use
  Company Number: US-GLAXOSMITHKLINE-US2019GSK016219

PATIENT
  Age: 76 Year
  Sex: Female

DRUGS (1)
  1. ATOVAQUONE + PROGUANIL HYDROCHLORIDE FILM-COATED TABLET [Suspect]
     Active Substance: ATOVAQUONE\PROGUANIL HYDROCHLORIDE
     Indication: PROPHYLAXIS
     Dosage: UNK
     Route: 048
     Dates: start: 20190111, end: 20190124

REACTIONS (7)
  - Cough [Recovered/Resolved]
  - Insomnia [Unknown]
  - Adverse reaction [Unknown]
  - Dysphonia [Recovered/Resolved]
  - Dizziness [Not Recovered/Not Resolved]
  - Depression [Unknown]
  - Adverse drug reaction [Unknown]

NARRATIVE: CASE EVENT DATE: 201901
